FAERS Safety Report 15270724 (Version 1)
Quarter: 2018Q3

REPORT INFORMATION
  Report Type: Spontaneous
  Country: US (occurrence: US)
  Receive Date: 20180726
  Receipt Date: 20180726
  Transmission Date: 20181010
  Serious: No
  Sender: FDA-Public Use
  Company Number: None

PATIENT
  Age: 73 Year
  Sex: Male

DRUGS (1)
  1. SPRYCEL [Suspect]
     Active Substance: DASATINIB

REACTIONS (4)
  - Increased bronchial secretion [None]
  - Dyspnoea [None]
  - Fatigue [None]
  - Pyrexia [None]

NARRATIVE: CASE EVENT DATE: 20180705
